FAERS Safety Report 11262862 (Version 1)
Quarter: 2015Q3

REPORT INFORMATION
  Report Type: Spontaneous
  Country: FR (occurrence: FR)
  Receive Date: 20150710
  Receipt Date: 20150710
  Transmission Date: 20151125
  Serious: Yes (Hospitalization)
  Sender: FDA-Public Use
  Company Number: FR-GILEAD-2015-0161891

PATIENT
  Age: 52 Year
  Sex: Male

DRUGS (11)
  1. HARVONI [Suspect]
     Active Substance: LEDIPASVIR\SOFOSBUVIR
     Indication: CHRONIC HEPATITIS C
     Dosage: 1 DF, UNK
     Route: 048
     Dates: start: 20150126, end: 20150415
  2. KARDEGIC [Concomitant]
     Active Substance: ASPIRIN LYSINE
  3. NEORAL [Concomitant]
     Active Substance: CYCLOSPORINE
  4. LERCAN [Concomitant]
     Active Substance: LERCANIDIPINE
  5. AMLODIPINE [Concomitant]
     Active Substance: AMLODIPINE BESYLATE
  6. LANTUS [Concomitant]
     Active Substance: INSULIN GLARGINE
  7. ESIDREX [Concomitant]
     Active Substance: HYDROCHLOROTHIAZIDE
  8. CELLCEPT [Concomitant]
     Active Substance: MYCOPHENOLATE MOFETIL\MYCOPHENOLATE MOFETIL HYDROCHLORIDE
  9. NOVORAPID [Concomitant]
     Active Substance: INSULIN ASPART
  10. KERLONE [Concomitant]
     Active Substance: BETAXOLOL HYDROCHLORIDE
  11. ALTEIS [Concomitant]
     Active Substance: OLMESARTAN MEDOXOMIL

REACTIONS (1)
  - Blood creatinine increased [Recovered/Resolved]

NARRATIVE: CASE EVENT DATE: 201504
